FAERS Safety Report 21188640 (Version 3)
Quarter: 2024Q1

REPORT INFORMATION
  Report Type: Spontaneous
  Country: US (occurrence: US)
  Receive Date: 20220809
  Receipt Date: 20240327
  Transmission Date: 20240410
  Serious: Yes (Other)
  Sender: FDA-Public Use
  Company Number: US-BIOGEN-2022BI01145401

PATIENT
  Sex: Female

DRUGS (16)
  1. VUMERITY [Suspect]
     Active Substance: DIROXIMEL FUMARATE
     Indication: Multiple sclerosis
     Route: 050
     Dates: start: 20210927
  2. VUMERITY [Suspect]
     Active Substance: DIROXIMEL FUMARATE
     Dosage: STARTING DOSE
     Route: 050
     Dates: start: 20210525, end: 20230604
  3. VUMERITY [Suspect]
     Active Substance: DIROXIMEL FUMARATE
     Dosage: MAINTENANCE DOSE
     Route: 050
  4. NORVASC [Concomitant]
     Active Substance: AMLODIPINE BESYLATE
     Indication: Product used for unknown indication
     Dosage: 2 REFILLS
     Route: 050
     Dates: start: 20220719, end: 20230707
  5. FLORICET [Concomitant]
     Indication: Headache
     Dosage: 50-325-40 MG
     Route: 050
     Dates: start: 20220723
  6. VITAMIN D3 [Concomitant]
     Active Substance: CHOLECALCIFEROL
     Indication: Product used for unknown indication
     Dosage: 1000 UNIT
     Route: 050
     Dates: start: 20220723
  7. NORCO [Concomitant]
     Active Substance: ACETAMINOPHEN\HYDROCODONE BITARTRATE
     Indication: Product used for unknown indication
     Dosage: 5-325 MG
     Route: 050
     Dates: start: 20220718, end: 20230707
  8. VITAMIIN B12 [Concomitant]
     Indication: Product used for unknown indication
     Dosage: 1000 UNIT
     Route: 050
  9. VIMPAT [Concomitant]
     Active Substance: LACOSAMIDE
     Indication: Product used for unknown indication
     Dosage: 3 REFILLS
     Route: 050
     Dates: start: 20220825, end: 20221230
  10. LINZESS [Concomitant]
     Active Substance: LINACLOTIDE
     Indication: Product used for unknown indication
     Route: 050
     Dates: end: 20230707
  11. ZESTRIL [Concomitant]
     Active Substance: LISINOPRIL
     Indication: Product used for unknown indication
     Route: 050
     Dates: start: 20220719, end: 20230707
  12. PROTONIX DR [Concomitant]
     Indication: Product used for unknown indication
     Route: 050
     Dates: end: 20230707
  13. MIRALEX [Concomitant]
     Indication: Product used for unknown indication
     Dosage: 1 PACKET-17 GM
     Route: 050
     Dates: start: 20220724, end: 20230707
  14. LYRICA [Concomitant]
     Active Substance: PREGABALIN
     Indication: Product used for unknown indication
     Dosage: 5 REFILLS
     Route: 050
     Dates: start: 20220114, end: 20230707
  15. LYRICA [Concomitant]
     Active Substance: PREGABALIN
     Dosage: 5 REFILLS
     Route: 050
     Dates: start: 20220915, end: 20230322
  16. LIDODERM [Concomitant]
     Active Substance: LIDOCAINE
     Indication: Product used for unknown indication
     Dosage: APPLY 1 PATCH TO SKIN EVERYDAY, REMOVE AFTER 12 HRS ON SKIN, 5 % PATCH
     Route: 050
     Dates: start: 20221013, end: 20221112

REACTIONS (3)
  - Intracranial aneurysm [Recovered/Resolved]
  - Neurological procedural complication [Recovered/Resolved]
  - Memory impairment [Unknown]
